FAERS Safety Report 8119702-9 (Version None)
Quarter: 2012Q1

REPORT INFORMATION
  Report Type: 
  Country: None (occurrence: None)
  Receive Date: 20120207
  Receipt Date: 20120203
  Transmission Date: 20120608
  Serious: Yes (Other)
  Sender: FDA-Public Use
  Company Number: PHHY2010CA82800

PATIENT
  Sex: Female

DRUGS (2)
  1. ZOLEDRONOC ACID [Suspect]
     Dosage: UNK
     Route: 042
     Dates: start: 20110202
  2. ZOLEDRONOC ACID [Suspect]
     Indication: OSTEOPOROSIS
     Dosage: UNK
     Route: 042
     Dates: start: 20100126

REACTIONS (5)
  - POLYCYSTIC LIVER DISEASE [None]
  - RENAL IMPAIRMENT [None]
  - HEPATIC FAILURE [None]
  - VEIN DISORDER [None]
  - PNEUMONIA [None]
